FAERS Safety Report 5162393-X (Version None)
Quarter: 2006Q4

REPORT INFORMATION
  Report Type: 
  Country: None (occurrence: None)
  Receive Date: 20061128
  Receipt Date: 20061128
  Transmission Date: 20070319
  Serious: Yes (Hospitalization, Other)
  Sender: FDA-Public Use
  Company Number: None

PATIENT
  Age: 70 Year
  Sex: Male
  Weight: 97.5234 kg

DRUGS (15)
  1. HEPARIN [Suspect]
     Dosage: 25 ML / HR
     Dates: start: 20060721, end: 20060725
  2. DIGOXIN [Concomitant]
  3. DILTIAZEM HCL [Concomitant]
  4. FLUNISOLIDE INHALANT [Concomitant]
  5. FORMOTEROL [Concomitant]
  6. FUROSEMIDE [Concomitant]
  7. IPRATROPIUM BROMIDE [Concomitant]
  8. LEVALBUTEROL HCL [Concomitant]
  9. LEVOTHYROXINE SODIUM [Concomitant]
  10. METOPROLOL SUCCINATE [Concomitant]
  11. OMEPRAZOLE [Concomitant]
  12. POTASSIUM CHLORIDE [Concomitant]
  13. SERTRALINE [Concomitant]
  14. SIMVASTATIN [Concomitant]
  15. TERAZOSIN HCL [Concomitant]

REACTIONS (1)
  - HEPARIN-INDUCED THROMBOCYTOPENIA [None]
